FAERS Safety Report 5440526-5 (Version None)
Quarter: 2007Q3

REPORT INFORMATION
  Report Type: 
  Country: None (occurrence: None)
  Receive Date: 20070831
  Receipt Date: 20070824
  Transmission Date: 20080115
  Serious: Yes (Hospitalization)
  Sender: FDA-Public Use
  Company Number: GB-GENENTECH-246762

PATIENT
  Sex: Female
  Weight: 100 kg

DRUGS (5)
  1. RITUXAN [Suspect]
     Indication: RHEUMATOID ARTHRITIS
     Dosage: 1000 MG, UNK
     Route: 042
     Dates: start: 20070718, end: 20070718
  2. PARACETAMOL [Concomitant]
     Indication: PAIN
     Dosage: 1 G, QID
     Route: 048
     Dates: start: 20020101
  3. PIRITON [Concomitant]
     Indication: PREMEDICATION
     Dosage: 10 MG, UNK
     Route: 042
  4. PREDNISOLONE [Concomitant]
     Indication: RHEUMATOID ARTHRITIS
     Dosage: 100 MG, UNK
     Route: 042
     Dates: start: 20070718
  5. TRAMADOL HCL [Concomitant]
     Indication: PAIN
     Dosage: 100 MG, UNK
     Route: 048

REACTIONS (5)
  - DYSPNOEA [None]
  - FACE OEDEMA [None]
  - HYPERSENSITIVITY [None]
  - OEDEMA PERIPHERAL [None]
  - VOMITING [None]
